FAERS Safety Report 23633829 (Version 1)
Quarter: 2024Q1

REPORT INFORMATION
  Report Type: Spontaneous
  Country: US (occurrence: US)
  Receive Date: 20240314
  Receipt Date: 20240314
  Transmission Date: 20240409
  Serious: No
  Sender: FDA-Public Use
  Company Number: US-PFIZER INC-202400063923

PATIENT
  Age: 83 Year
  Sex: Female

DRUGS (14)
  1. IBRANCE [Suspect]
     Active Substance: PALBOCICLIB
     Dosage: 75 MG, CYCLIC, DAILY FOR 3 WEEKS ON, THEN 1 WEEK OFF
     Dates: start: 20221102
  2. METOPROLOL SUCCINATE [Concomitant]
     Active Substance: METOPROLOL SUCCINATE
  3. VITAMIN D3 [Concomitant]
     Active Substance: CHOLECALCIFEROL
  4. ARAVA [Concomitant]
     Active Substance: LEFLUNOMIDE
  5. CHLORTHALIDONE [Concomitant]
     Active Substance: CHLORTHALIDONE
  6. FOLIC ACID [Concomitant]
     Active Substance: FOLIC ACID
  7. CALCIUM CITRATE [Concomitant]
     Active Substance: CALCIUM CITRATE
  8. GLIMEPIRIDE [Concomitant]
     Active Substance: GLIMEPIRIDE
  9. LETROZOLE [Concomitant]
     Active Substance: LETROZOLE
  10. VITAMIN B12 [Concomitant]
     Active Substance: CYANOCOBALAMIN
  11. SIMVASTATIN [Concomitant]
     Active Substance: SIMVASTATIN
  12. PROLIA [Concomitant]
     Active Substance: DENOSUMAB
  13. RAMIPRIL [Concomitant]
     Active Substance: RAMIPRIL
  14. ASPIRIN [Concomitant]
     Active Substance: ASPIRIN

REACTIONS (1)
  - Nausea [Unknown]
